FAERS Safety Report 11289430 (Version 1)
Quarter: 2015Q3

REPORT INFORMATION
  Report Type: Report from Study
  Country: NL (occurrence: NL)
  Receive Date: 20150721
  Receipt Date: 20150721
  Transmission Date: 20151125
  Serious: Yes (Hospitalization)
  Sender: FDA-Public Use
  Company Number: NL-ABBVIE-15P-114-1420945-00

PATIENT
  Age: 69 Year
  Sex: Female
  Weight: 85 kg

DRUGS (1)
  1. DUODOPA [Suspect]
     Active Substance: CARBIDOPA\LEVODOPA
     Indication: PARKINSON^S DISEASE
     Dosage: MORNING DOSE: 11.0 CONTINUOUS DOSE: 4.5 EXTRA DOSE: 2.0 NIGHT DOSE: NO NIGHT DOSE
     Route: 050
     Dates: start: 20150622

REACTIONS (9)
  - Ileus [Not Recovered/Not Resolved]
  - Gastric dilatation [Not Recovered/Not Resolved]
  - Diarrhoea [Not Recovered/Not Resolved]
  - Nausea [Not Recovered/Not Resolved]
  - Dyskinesia [Not Recovered/Not Resolved]
  - Pain [Not Recovered/Not Resolved]
  - On and off phenomenon [Not Recovered/Not Resolved]
  - Agitation [Not Recovered/Not Resolved]
  - Abdominal pain [Unknown]

NARRATIVE: CASE EVENT DATE: 201506
